FAERS Safety Report 9731398 (Version 2)
Quarter: 2013Q4

REPORT INFORMATION
  Report Type: Spontaneous
  Country: US (occurrence: US)
  Receive Date: 20131205
  Receipt Date: 20131213
  Transmission Date: 20140711
  Serious: Yes (Other)
  Sender: FDA-Public Use
  Company Number: US-ASTRAZENECA-2013SE87825

PATIENT
  Age: 54 Year
  Sex: Female
  Weight: 63.5 kg

DRUGS (7)
  1. SEROQUEL [Suspect]
     Indication: DEPRESSION
     Route: 048
     Dates: start: 2006
  2. SEROQUEL [Suspect]
     Indication: NERVOUSNESS
     Route: 048
     Dates: start: 2006
  3. SEROQUEL [Suspect]
     Indication: BIPOLAR I DISORDER
     Route: 048
     Dates: start: 2006
  4. METOPROLOL (CARACO) [Concomitant]
     Indication: HYPERTENSION
     Route: 048
  5. OTHER MEDICATIONS [Concomitant]
     Indication: BLOOD CHOLESTEROL INCREASED
  6. ALBUTEROL SULFATE [Concomitant]
     Indication: BRONCHITIS
     Route: 055
  7. ATORVASTATIN [Concomitant]
     Indication: BLOOD CHOLESTEROL INCREASED

REACTIONS (11)
  - Suicidal ideation [Not Recovered/Not Resolved]
  - Insomnia [Unknown]
  - Malaise [Unknown]
  - Bronchitis [Unknown]
  - Hypertension [Unknown]
  - Aphagia [Unknown]
  - Therapeutic response unexpected [Unknown]
  - Visual impairment [Unknown]
  - Dyspnoea [Unknown]
  - Blood cholesterol increased [Unknown]
  - Drug dose omission [Unknown]
